FAERS Safety Report 5482856-7 (Version None)
Quarter: 2007Q4

REPORT INFORMATION
  Report Type: 
  Country: None (occurrence: None)
  Receive Date: 20071011
  Receipt Date: 20071001
  Transmission Date: 20080405
  Serious: Yes (Other)
  Sender: FDA-Public Use
  Company Number: US-PFIZER INC-2007075724

PATIENT
  Sex: Male

DRUGS (7)
  1. LIPITOR [Suspect]
     Indication: BLOOD CHOLESTEROL INCREASED
  2. CELEBREX [Concomitant]
     Indication: EROSIVE OESOPHAGITIS
  3. PREDNISONE [Concomitant]
  4. AMBIEN [Concomitant]
  5. ACETYLSALICYLIC ACID [Concomitant]
  6. GLUCOSAMINE [Concomitant]
  7. CHONDROITIN [Concomitant]

REACTIONS (6)
  - BURNING SENSATION [None]
  - DIVERTICULITIS [None]
  - GLOSSODYNIA [None]
  - MYALGIA [None]
  - OEDEMA MOUTH [None]
  - ORAL DISCOMFORT [None]
